FAERS Safety Report 25965873 (Version 1)
Quarter: 2025Q4

REPORT INFORMATION
  Report Type: Spontaneous
  Country: CN (occurrence: CN)
  Receive Date: 20251027
  Receipt Date: 20251027
  Transmission Date: 20260117
  Serious: Yes (Hospitalization)
  Sender: BEIGENE
  Company Number: CN-BEIGENE-BGN-2025-018197

PATIENT
  Age: 33 Year
  Weight: 46 kg

DRUGS (12)
  1. TISLELIZUMAB [Suspect]
     Active Substance: TISLELIZUMAB
     Indication: Nasopharyngeal cancer
     Dosage: 200 MILLIGRAM
  2. TISLELIZUMAB [Suspect]
     Active Substance: TISLELIZUMAB
     Dosage: 200 MILLIGRAM
     Route: 041
  3. TISLELIZUMAB [Suspect]
     Active Substance: TISLELIZUMAB
     Dosage: 200 MILLIGRAM
     Route: 041
  4. TISLELIZUMAB [Suspect]
     Active Substance: TISLELIZUMAB
     Dosage: 200 MILLIGRAM
  5. GEMCITABINE HYDROCHLORIDE [Concomitant]
     Active Substance: GEMCITABINE HYDROCHLORIDE
     Indication: Nasopharyngeal cancer
     Dosage: 1400 MILLIGRAM
  6. GEMCITABINE HYDROCHLORIDE [Concomitant]
     Active Substance: GEMCITABINE HYDROCHLORIDE
     Dosage: 1400 MILLIGRAM
     Route: 041
  7. GEMCITABINE HYDROCHLORIDE [Concomitant]
     Active Substance: GEMCITABINE HYDROCHLORIDE
     Dosage: 1400 MILLIGRAM
     Route: 041
  8. GEMCITABINE HYDROCHLORIDE [Concomitant]
     Active Substance: GEMCITABINE HYDROCHLORIDE
     Dosage: 1400 MILLIGRAM
  9. CISPLATIN [Concomitant]
     Active Substance: CISPLATIN
     Indication: Nasopharyngeal cancer
     Dosage: 55 MILLIGRAM
  10. CISPLATIN [Concomitant]
     Active Substance: CISPLATIN
     Dosage: 55 MILLIGRAM
     Route: 041
  11. CISPLATIN [Concomitant]
     Active Substance: CISPLATIN
     Dosage: 55 MILLIGRAM
     Route: 041
  12. CISPLATIN [Concomitant]
     Active Substance: CISPLATIN
     Dosage: 55 MILLIGRAM

REACTIONS (2)
  - Liver injury [Recovering/Resolving]
  - Rash [Recovering/Resolving]
